FAERS Safety Report 16095634 (Version 1)
Quarter: 2019Q2

REPORT INFORMATION
  Report Type: Spontaneous
  Country: US (occurrence: US)
  Receive Date: 20190320
  Receipt Date: 20190320
  Transmission Date: 20190711
  Serious: Yes (Death, Hospitalization)
  Sender: FDA-Public Use
  Company Number: None

PATIENT
  Age: 70 Year
  Sex: Male

DRUGS (2)
  1. ASPIRIN 81MG DAILY [Concomitant]
     Active Substance: ASPIRIN
  2. APIXABAN [Suspect]
     Active Substance: APIXABAN
     Route: 048

REACTIONS (4)
  - Cerebral infarction [None]
  - Subdural haematoma [None]
  - Unresponsive to stimuli [None]
  - International normalised ratio decreased [None]

NARRATIVE: CASE EVENT DATE: 20190207
